FAERS Safety Report 9475937 (Version 1)
Quarter: 2013Q3

REPORT INFORMATION
  Report Type: Spontaneous
  Country: FR (occurrence: None)
  Receive Date: 20130821
  Receipt Date: 20130821
  Transmission Date: 20140515
  Serious: Yes (Hospitalization)
  Sender: FDA-Public Use
  Company Number: AXC-2013-000403

PATIENT
  Age: 73 Year
  Sex: Female

DRUGS (4)
  1. PYLERA [Suspect]
     Indication: GASTRITIS
     Route: 048
     Dates: start: 20130709, end: 20130715
  2. INEXIUM [Concomitant]
  3. SOTALEX [Concomitant]
  4. SOLUPRED [Concomitant]

REACTIONS (9)
  - Angioedema [None]
  - Dysphagia [None]
  - Angioedema [None]
  - Oedema peripheral [None]
  - Tongue discolouration [None]
  - Skin exfoliation [None]
  - Asthenia [None]
  - Anaemia [None]
  - Discomfort [None]
